FAERS Safety Report 7987900-0 (Version None)
Quarter: 2011Q4

REPORT INFORMATION
  Report Type: 
  Country: None (occurrence: None)
  Receive Date: 20111216
  Receipt Date: 20111215
  Transmission Date: 20120403
  Serious: Yes (Other)
  Sender: FDA-Public Use
  Company Number: ZA-ABBOTT-11P-143-0874136-00

PATIENT
  Age: 37 Year
  Sex: Female

DRUGS (3)
  1. ZYPREXA [Concomitant]
     Indication: PRODUCT USED FOR UNKNOWN INDICATION
     Dates: start: 20110701
  2. VALPROATE SODIUM [Suspect]
     Indication: BIPOLAR I DISORDER
     Route: 048
     Dates: end: 20111001
  3. OLANZAPINE [Suspect]
     Indication: AFFECTIVE DISORDER
     Dosage: DAILY
     Route: 048
     Dates: end: 20111001

REACTIONS (2)
  - PLATELET COUNT DECREASED [None]
  - THROMBOTIC THROMBOCYTOPENIC PURPURA [None]
